FAERS Safety Report 14694612 (Version 27)
Quarter: 2022Q1

REPORT INFORMATION
  Report Type: Spontaneous
  Country: CA (occurrence: CA)
  Receive Date: 20180329
  Receipt Date: 20220125
  Transmission Date: 20220423
  Serious: Yes (Hospitalization, Other)
  Sender: FDA-Public Use
  Company Number: CA-CELLTRION INC.-2018CA018835

PATIENT

DRUGS (24)
  1. INFLECTRA [Suspect]
     Active Substance: INFLIXIMAB-DYYB
     Indication: Rheumatoid arthritis
     Dosage: 210 MG, SCHEDULED FOR 0, 2, 6, THEN EVERY 8 WEEKS
     Route: 042
     Dates: start: 20180313, end: 2020
  2. INFLECTRA [Suspect]
     Active Substance: INFLIXIMAB-DYYB
     Indication: Colitis ulcerative
     Dosage: 210 MG,SCHEDULED FOR 0, 2, 6, THEN EVERY 8 WEEKS
     Route: 042
     Dates: start: 20180328
  3. INFLECTRA [Suspect]
     Active Substance: INFLIXIMAB-DYYB
     Dosage: 210 MG, SCHEDULED FOR 0, 2, 6, THEN EVERY 8 WEEKS
     Route: 042
     Dates: start: 20180425
  4. INFLECTRA [Suspect]
     Active Substance: INFLIXIMAB-DYYB
     Dosage: 210 MG, SCHEDULED FOR 0, 2, 6, THEN EVERY 8 WEEKS
     Route: 042
     Dates: start: 20180619
  5. INFLECTRA [Suspect]
     Active Substance: INFLIXIMAB-DYYB
     Dosage: 210 MG, SCHEDULED FOR 0, 2, 6, THEN EVERY 8 WEEKS
     Route: 042
     Dates: start: 20180814
  6. INFLECTRA [Suspect]
     Active Substance: INFLIXIMAB-DYYB
     Dosage: 210 MG, SCHEDULED FOR 0, 2, 6, THEN EVERY 8 WEEKS
     Route: 042
     Dates: start: 20181015
  7. INFLECTRA [Suspect]
     Active Substance: INFLIXIMAB-DYYB
     Dosage: 210 MG, SCHEDULED FOR 0, 2, 6, THEN EVERY 8 WEEKS
     Route: 042
     Dates: start: 20181205
  8. INFLECTRA [Suspect]
     Active Substance: INFLIXIMAB-DYYB
     Dosage: 210 MG, SCHEDULED FOR 0, 2, 6, THEN EVERY 8 WEEKS
     Route: 042
     Dates: start: 20190313
  9. INFLECTRA [Suspect]
     Active Substance: INFLIXIMAB-DYYB
     Dosage: 210 MG, SCHEDULED FOR 0, 2, 6, THEN EVERY 8 WEEKS
     Route: 042
     Dates: start: 20190516
  10. INFLECTRA [Suspect]
     Active Substance: INFLIXIMAB-DYYB
     Dosage: 210 MG, SCHEDULED FOR 0, 2, 6, THEN EVERY 8 WEEKS
     Route: 042
     Dates: start: 20190711
  11. INFLECTRA [Suspect]
     Active Substance: INFLIXIMAB-DYYB
     Dosage: 210 MG, SCHEDULED FOR 0, 2, 6, THEN EVERY 8 WEEKS
     Route: 042
     Dates: start: 20190905
  12. INFLECTRA [Suspect]
     Active Substance: INFLIXIMAB-DYYB
     Dosage: 210 MG, SCHEDULED FOR 0, 2, 6, THEN EVERY 8 WEEKS
     Route: 042
     Dates: start: 20191106
  13. INFLECTRA [Suspect]
     Active Substance: INFLIXIMAB-DYYB
     Dosage: 210 MG, SCHEDULED FOR 0, 2, 6, THEN EVERY 8 WEEKS
     Route: 042
     Dates: start: 20200103
  14. INFLECTRA [Suspect]
     Active Substance: INFLIXIMAB-DYYB
     Dosage: 210 MG, SCHEDULED FOR 0, 2, 6, THEN EVERY 8 WEEKS
     Route: 042
     Dates: start: 20200228
  15. INFLECTRA [Suspect]
     Active Substance: INFLIXIMAB-DYYB
     Dosage: 210 MG, SCHEDULED FOR 0, 2, 6, THEN EVERY 8 WEEKS
     Route: 042
     Dates: start: 20200424
  16. INFLECTRA [Suspect]
     Active Substance: INFLIXIMAB-DYYB
     Dosage: 500 MG EVERY 8 WEEKS
     Route: 042
     Dates: start: 20200501
  17. INFLECTRA [Suspect]
     Active Substance: INFLIXIMAB-DYYB
     Dosage: 500 MG EVERY 8 WEEKS
     Route: 042
     Dates: start: 20200623
  18. INFLECTRA [Suspect]
     Active Substance: INFLIXIMAB-DYYB
     Dosage: 500 MG EVERY 8 WEEKS
     Route: 042
     Dates: start: 20200821
  19. INFLECTRA [Suspect]
     Active Substance: INFLIXIMAB-DYYB
     Dosage: 300 MG, EVERY 8 WEEKS
     Route: 042
     Dates: start: 2020
  20. INFLECTRA [Suspect]
     Active Substance: INFLIXIMAB-DYYB
     Dosage: 300 MG, EVERY 8 WEEKS
     Route: 042
     Dates: start: 20211104
  21. INFLECTRA [Suspect]
     Active Substance: INFLIXIMAB-DYYB
     Dosage: 300 MG, EVERY 8 WEEKS
     Route: 042
     Dates: start: 20220114
  22. METHOTREXATE [Concomitant]
     Active Substance: METHOTREXATE
     Dosage: 15 MG, WEEKLY
     Route: 058
  23. METHOTREXATE [Concomitant]
     Active Substance: METHOTREXATE
     Dosage: 15 MG, WEEKLY
     Route: 048
  24. SYMBICORT [Concomitant]
     Active Substance: BUDESONIDE\FORMOTEROL FUMARATE DIHYDRATE
     Indication: Interstitial lung disease
     Dosage: UNK
     Dates: start: 201806

REACTIONS (23)
  - Abdominal discomfort [Unknown]
  - Rheumatoid arthritis [Unknown]
  - Condition aggravated [Unknown]
  - Pneumonia [Unknown]
  - Interstitial lung disease [Unknown]
  - Clostridium difficile infection [Recovered/Resolved]
  - Off label use [Unknown]
  - Intentional product use issue [Unknown]
  - Inappropriate schedule of product administration [Unknown]
  - Blood pressure fluctuation [Not Recovered/Not Resolved]
  - Chest pain [Recovering/Resolving]
  - Fatigue [Unknown]
  - Heart rate abnormal [Not Recovered/Not Resolved]
  - Heart rate decreased [Not Recovered/Not Resolved]
  - Infusion site swelling [Recovered/Resolved]
  - Nasal congestion [Not Recovered/Not Resolved]
  - Oxygen saturation decreased [Unknown]
  - Pain [Unknown]
  - Rash macular [Recovered/Resolved]
  - Joint swelling [Unknown]
  - Arthralgia [Unknown]
  - Musculoskeletal stiffness [Unknown]
  - Nasopharyngitis [Recovered/Resolved]

NARRATIVE: CASE EVENT DATE: 20180101
